FAERS Safety Report 6402018-6 (Version None)
Quarter: 2009Q4

REPORT INFORMATION
  Report Type: 
  Country: None (occurrence: None)
  Receive Date: 20091015
  Receipt Date: 20091007
  Transmission Date: 20100525
  Serious: Yes (Hospitalization)
  Sender: FDA-Public Use
  Company Number: US-JNJFOC-20091003568

PATIENT
  Age: 44 Year
  Sex: Male
  Weight: 70 kg

DRUGS (10)
  1. DOXORUBICIN HCL [Suspect]
     Dosage: CYCLE 2 TOTAL DOSE 77.2 MG
     Route: 042
     Dates: start: 20080318, end: 20080408
  2. DOXORUBICIN HCL [Suspect]
     Indication: LYMPHOMA AIDS RELATED
     Dosage: CYCLE 1
     Route: 042
     Dates: start: 20080318, end: 20080408
  3. RITUXIMAB [Suspect]
     Dosage: CYCLE 2 TOTAL DOSE 723.8 MG
     Route: 042
     Dates: start: 20080318, end: 20080408
  4. RITUXIMAB [Suspect]
     Indication: LYMPHOMA AIDS RELATED
     Route: 042
     Dates: start: 20080318, end: 20080408
  5. CYCLOPHOSPHAMIDE [Suspect]
     Dosage: CYCLE 2 TOTAL DOSE 1470MG
     Route: 042
     Dates: start: 20080318, end: 20080408
  6. CYCLOPHOSPHAMIDE [Suspect]
     Indication: LYMPHOMA AIDS RELATED
     Route: 042
     Dates: start: 20080318, end: 20080408
  7. VINCRISTINE [Suspect]
     Dosage: CYCLE 2 TOTAL DOSE 2 MG
     Route: 042
     Dates: start: 20080318, end: 20080409
  8. VINCRISTINE [Suspect]
     Indication: LYMPHOMA AIDS RELATED
     Route: 042
     Dates: start: 20080318, end: 20080409
  9. PREDNISONE [Suspect]
     Dosage: CYCLE 2 TOTAL DOSE 500 MG
     Route: 048
     Dates: start: 20080308, end: 20080412
  10. PREDNISONE [Suspect]
     Indication: LYMPHOMA AIDS RELATED
     Route: 048
     Dates: start: 20080308, end: 20080412

REACTIONS (1)
  - HYPERURICAEMIA [None]
